FAERS Safety Report 11976213 (Version 1)
Quarter: 2016Q1

REPORT INFORMATION
  Report Type: Spontaneous
  Country: None (occurrence: None)
  Receive Date: 20160128
  Receipt Date: 20160128
  Transmission Date: 20160526
  Serious: Yes (Other)
  Sender: FDA-Public Use
  Company Number: None

PATIENT
  Age: 17 Year
  Sex: Male
  Weight: 47.3 kg

DRUGS (1)
  1. DANTROLENE CAPSULE [Suspect]
     Active Substance: DANTROLENE
     Indication: SEIZURE
     Dosage: 25MG TID 2 CAPSULES VIA GTUBE
     Dates: start: 201412

REACTIONS (4)
  - Product substitution issue [None]
  - Condition aggravated [None]
  - Drug ineffective [None]
  - Seizure [None]

NARRATIVE: CASE EVENT DATE: 201412
